FAERS Safety Report 9958617 (Version 1)
Quarter: 2014Q1

REPORT INFORMATION
  Report Type: Spontaneous
  Country: US (occurrence: None)
  Receive Date: 20140124
  Receipt Date: 20140124
  Transmission Date: 20141002
  Serious: Yes (Hospitalization)
  Sender: FDA-Public Use
  Company Number: 2012AP001803

PATIENT
  Age: 25 Year
  Sex: Female

DRUGS (2)
  1. MYCOPHENOLATE MOFETIL TABLETS [Suspect]
     Indication: MIXED CONNECTIVE TISSUE DISEASE
  2. MYCOPHENOLATE MOFETIL TABLETS [Suspect]
     Indication: OFF LABEL USE

REACTIONS (2)
  - Colitis [None]
  - Off label use [None]
